FAERS Safety Report 24716928 (Version 1)
Quarter: 2024Q4

REPORT INFORMATION
  Report Type: Other
  Country: NL (occurrence: NL)
  Receive Date: 20241210
  Receipt Date: 20241210
  Transmission Date: 20250115
  Serious: Yes (Other)
  Sender: PL DEVELOPMENTS
  Company Number: NL-P+L Developments of Newyork Corporation-2166812

PATIENT
  Weight: 3.57 kg

DRUGS (5)
  1. MICONAZOLE NITRATE [Suspect]
     Active Substance: MICONAZOLE NITRATE
     Indication: Product used for unknown indication
  2. ADALIMUMAB [Suspect]
     Active Substance: ADALIMUMAB
  3. PERTUSSIS VACCINE [Suspect]
     Active Substance: PERTUSSIS VACCINE
  4. CEFACLOR [Suspect]
     Active Substance: CEFACLOR
  5. ZINC SULFATE [Suspect]
     Active Substance: ZINC SULFATE

REACTIONS (2)
  - Congenital hydronephrosis [Unknown]
  - Foetal exposure during pregnancy [Unknown]
